FAERS Safety Report 15758830 (Version 2)
Quarter: 2019Q1

REPORT INFORMATION
  Report Type: Report from Study
  Country: DE (occurrence: DE)
  Receive Date: 20181225
  Receipt Date: 20190114
  Transmission Date: 20190417
  Serious: Yes (Other)
  Sender: FDA-Public Use
  Company Number: DE-AMGEN-DEUNI2018183043

PATIENT
  Age: 79 Year
  Sex: Male
  Weight: 73 kg

DRUGS (41)
  1. PANITUMUMAB [Suspect]
     Active Substance: PANITUMUMAB
     Dosage: 80 MG, UNK
     Route: 042
     Dates: start: 20181031
  2. FLUOROURACIL. [Suspect]
     Active Substance: FLUOROURACIL
     Indication: COLORECTAL CANCER METASTATIC
     Dosage: 748 MG, UNK
     Route: 040
     Dates: start: 20180517
  3. PANTOZOL [Concomitant]
     Active Substance: PANTOPRAZOLE SODIUM
     Indication: PROPHYLAXIS
     Dosage: 40 MG, QD
     Route: 048
     Dates: start: 201805
  4. MUCOFALK [Concomitant]
     Active Substance: HERBALS\PLANTAGO OVATA LEAF
     Indication: DIARRHOEA
     Dosage: UNK UNK, AS NECESSARY
     Route: 048
     Dates: start: 20180801, end: 20181002
  5. MAGNESIUM SANDOZ [Concomitant]
     Indication: HYPOMAGNESAEMIA
     Dosage: 300 MG, BID
     Route: 048
     Dates: start: 20180821, end: 20181203
  6. FLUOROURACIL. [Suspect]
     Active Substance: FLUOROURACIL
     Dosage: 4488 MG, UNK
     Route: 042
     Dates: start: 20180517
  7. FLUOROURACIL. [Suspect]
     Active Substance: FLUOROURACIL
     Dosage: 750 MG, UNK
     Route: 040
     Dates: start: 20180614
  8. FLUOROURACIL. [Suspect]
     Active Substance: FLUOROURACIL
     Dosage: 4490 MG, UNK
     Route: 042
     Dates: start: 20181127
  9. ACIVISION [Concomitant]
     Indication: CONJUNCTIVITIS
     Dosage: 30 MG,FIVE TIMES A DAY
     Dates: start: 20180919, end: 20181019
  10. FOLINIC ACID [Suspect]
     Active Substance: LEUCOVORIN
     Dosage: 750 MG, UNK
     Route: 065
     Dates: start: 20180614
  11. FLUOROURACIL. [Suspect]
     Active Substance: FLUOROURACIL
     Dosage: 4490 MG, UNK
     Route: 042
     Dates: start: 20180627
  12. AKNEMYCIN [Concomitant]
     Indication: DERMATITIS ACNEIFORM
     Dosage: 20 MG, AS NECESSARY
     Route: 061
     Dates: start: 20180801, end: 20190108
  13. HISTOACRYL [Concomitant]
     Active Substance: ENBUCRILATE
     Indication: PARONYCHIA
     Dosage: UNK UNK, QD
     Route: 061
     Dates: start: 20181120, end: 20190108
  14. RIVANOL [Concomitant]
     Active Substance: ETHACRIDINE LACTATE
     Indication: PARONYCHIA
     Dosage: 0.1 UNK, AS NECESSARY
     Route: 061
     Dates: start: 20181120, end: 20190108
  15. PANITUMUMAB [Suspect]
     Active Substance: PANITUMUMAB
     Dosage: 350 MG, UNK
     Route: 042
     Dates: start: 20181113
  16. CANDIO-HERMAL [Concomitant]
     Active Substance: NYSTATIN
     Indication: PROPHYLAXIS
     Dosage: 8 ML, AS NECESSARY
     Route: 048
     Dates: start: 201805
  17. NOVAMINSULFON-RATIOPHARM [Concomitant]
     Active Substance: METAMIZOLE
     Indication: PAIN
     Dosage: 500 MG, AS NECESSARY
     Route: 048
     Dates: start: 201806, end: 20180711
  18. MOVICOL [Concomitant]
     Active Substance: POLYETHYLENE GLYCOL 3350\POTASSIUM CHLORIDE\SODIUM BICARBONATE\SODIUM CHLORIDE
     Indication: CONSTIPATION PROPHYLAXIS
     Dosage: 13.81 G, AS NECESSARY
     Route: 048
     Dates: start: 201806
  19. BAYOTENSIN [Concomitant]
     Active Substance: NITRENDIPINE
     Indication: HYPERTENSION
     Dosage: 5 MG, QD
     Route: 048
     Dates: start: 20181119, end: 20181119
  20. FLUOROURACIL. [Suspect]
     Active Substance: FLUOROURACIL
     Dosage: 4500 MG, UNK
     Route: 042
     Dates: start: 20180614
  21. COTRIM FORTE [Concomitant]
     Active Substance: SULFAMETHOXAZOLE\TRIMETHOPRIM
     Indication: URINARY TRACT INFECTION
     Dosage: 960 MG, BID
     Route: 048
     Dates: start: 20180614, end: 20180620
  22. DUODART [Concomitant]
     Active Substance: DUTASTERIDE\TAMSULOSIN
     Indication: BENIGN PROSTATIC HYPERPLASIA
     Dosage: 1 UNK QD
     Route: 048
     Dates: start: 2013
  23. MINOCYCLIN-RATIOPHARM [Concomitant]
     Indication: DERMATITIS ACNEIFORM
     Dosage: 50 MG, BID
     Route: 048
     Dates: start: 20180801, end: 20190108
  24. LOPERAMID [Concomitant]
     Active Substance: LOPERAMIDE
     Indication: DIARRHOEA
     Dosage: 2 MG, AS NECESSARY
     Route: 048
     Dates: start: 20180711, end: 20181002
  25. FLOXAL [Concomitant]
     Active Substance: OFLOXACIN
     Indication: CONJUNCTIVITIS
     Dosage: 3 MG TID AND 30 MG FIVE TIMES A DAY
     Dates: start: 20180919, end: 20181009
  26. FUCIDIN [Concomitant]
     Active Substance: FUSIDATE SODIUM
     Indication: PARONYCHIA
     Dosage: 2 UNK, AS NECESSARY
     Route: 061
     Dates: start: 20181002, end: 20190108
  27. FLUOROURACIL. [Suspect]
     Active Substance: FLUOROURACIL
     Dosage: 4500 MG, UNK
     Route: 042
     Dates: start: 20180725
  28. GLANDOMED [Concomitant]
     Indication: STOMATITIS
     Dosage: 40 ML, AS NECESSARY
     Route: 048
     Dates: start: 201805
  29. DELIX [Concomitant]
     Indication: HYPERTENSION
     Dosage: 5 MG, QD AND BID
     Route: 048
     Dates: start: 20171119
  30. PANITUMUMAB [Suspect]
     Active Substance: PANITUMUMAB
     Dosage: 350 MG, UNK
     Route: 042
     Dates: start: 20181002
  31. FLUOROURACIL. [Suspect]
     Active Substance: FLUOROURACIL
     Dosage: 4500 MG, UNK
     Route: 042
     Dates: start: 20181211
  32. IRINOTECAN [Suspect]
     Active Substance: IRINOTECAN
     Dosage: 340 MG, UNK
     Route: 065
     Dates: start: 20180614
  33. LIXIANA [Concomitant]
     Active Substance: EDOXABAN TOSYLATE
     Indication: CARDIAC ABLATION
     Dosage: 60 MG, QD
     Route: 048
     Dates: start: 201708
  34. IMODIUM [Concomitant]
     Active Substance: LOPERAMIDE HYDROCHLORIDE
     Indication: DIARRHOEA
     Dosage: UNK UNK, QID
     Route: 048
     Dates: start: 20180801, end: 20180807
  35. MCP-RATIOPHARM [Concomitant]
     Active Substance: METOCLOPRAMIDE HYDROCHLORIDE
     Indication: NAUSEA
     Dosage: 30 MG, AS NECESSARY
     Route: 048
     Dates: start: 201806, end: 20180711
  36. ZOPICLONE RATIOPHARM [Concomitant]
     Indication: SLEEP DISORDER
     Dosage: 7.5 MG, AS NECESSARY
     Route: 048
     Dates: start: 201806, end: 20180711
  37. PANITUMUMAB [Suspect]
     Active Substance: PANITUMUMAB
     Indication: COLORECTAL CANCER METASTATIC
     Dosage: 440 MG, UNK
     Route: 042
     Dates: start: 20180614
  38. FOLINIC ACID [Suspect]
     Active Substance: LEUCOVORIN
     Indication: COLORECTAL CANCER METASTATIC
     Dosage: 748 MG, UNK
     Route: 065
     Dates: start: 20180517
  39. IRINOTECAN [Suspect]
     Active Substance: IRINOTECAN
     Indication: COLORECTAL CANCER METASTATIC
     Dosage: 336 MG, UNK
     Route: 065
     Dates: start: 20180517
  40. DERMATOP [Concomitant]
     Active Substance: PREDNICARBATE
     Indication: DERMATITIS ACNEIFORM
     Dosage: UNK UNK, AS NECESSARY
     Route: 061
     Dates: start: 20180801, end: 20190108
  41. MAGNESIUM VERLA [Concomitant]
     Active Substance: MAGNESIUM
     Indication: HYPOMAGNESAEMIA
     Dosage: 300 MG, QD
     Route: 048
     Dates: start: 20181203

REACTIONS (1)
  - Ophthalmic herpes zoster [Recovered/Resolved]

NARRATIVE: CASE EVENT DATE: 20181211
